FAERS Safety Report 7321174-9 (Version None)
Quarter: 2011Q1

REPORT INFORMATION
  Report Type: 
  Country: None (occurrence: None)
  Receive Date: 20110228
  Receipt Date: 20110214
  Transmission Date: 20110831
  Serious: Yes (Other)
  Sender: FDA-Public Use
  Company Number: BR-PFIZER INC-2006133957

PATIENT
  Age: 74 Year
  Sex: Female
  Weight: 56 kg

DRUGS (3)
  1. HIDANTAL [Suspect]
     Indication: SYNCOPE
     Dates: start: 20060701
  2. EPELIN [Suspect]
     Indication: DIZZINESS
     Route: 048
     Dates: start: 19860101, end: 20060701
  3. EPELIN [Suspect]
     Indication: SYNCOPE
     Dosage: 100 MG, 2X/DAY
     Route: 048
     Dates: start: 19910101, end: 20090101

REACTIONS (9)
  - TINNITUS [None]
  - SYNCOPE [None]
  - HYPERTENSION [None]
  - NERVOUSNESS [None]
  - PRODUCT FORMULATION ISSUE [None]
  - GAIT DISTURBANCE [None]
  - DIZZINESS [None]
  - DRUG EFFECT DECREASED [None]
  - VERTIGO [None]
